FAERS Safety Report 11784735 (Version 4)
Quarter: 2016Q3

REPORT INFORMATION
  Report Type: Spontaneous
  Country: US (occurrence: US)
  Receive Date: 20151130
  Receipt Date: 20160823
  Transmission Date: 20161109
  Serious: Yes (Hospitalization)
  Sender: FDA-Public Use
  Company Number: US-BEH-2015055989

PATIENT
  Age: 4 Day
  Sex: Male
  Weight: 8.48 kg

DRUGS (14)
  1. LEVOTHYROXINE. [Concomitant]
     Active Substance: LEVOTHYROXINE
  2. HIZENTRA [Suspect]
     Active Substance: HUMAN IMMUNOGLOBULIN G
     Indication: MULTIPLE CONGENITAL ABNORMALITIES
     Dosage: 1 G, QW
     Route: 058
  3. SOTALOL. [Concomitant]
     Active Substance: SOTALOL
  4. ROBINUL [Concomitant]
     Active Substance: GLYCOPYRROLATE
  5. CALCITRIOL. [Concomitant]
     Active Substance: CALCITRIOL
  6. ELEMENTAL CALCIUM [Concomitant]
  7. NYSTATIN. [Concomitant]
     Active Substance: NYSTATIN
  8. LIDOCAINE. [Concomitant]
     Active Substance: LIDOCAINE
  9. GENTAMICIN. [Concomitant]
     Active Substance: GENTAMICIN
  10. EPIPEN [Concomitant]
     Active Substance: EPINEPHRINE
  11. LACRI-LUBE [Concomitant]
  12. BACTRIM [Concomitant]
     Active Substance: SULFAMETHOXAZOLE\TRIMETHOPRIM
  13. DIPHENHYDRAMINE. [Concomitant]
     Active Substance: DIPHENHYDRAMINE
  14. AZITHROMYCIN ANHYDROUS. [Concomitant]
     Active Substance: AZITHROMYCIN ANHYDROUS

REACTIONS (2)
  - Nasopharyngitis [Unknown]
  - Gastric infection [Unknown]

NARRATIVE: CASE EVENT DATE: 201511
